FAERS Safety Report 7071174-1 (Version None)
Quarter: 2010Q4

REPORT INFORMATION
  Report Type: 
  Country: None (occurrence: None)
  Receive Date: 20101029
  Receipt Date: 20101015
  Transmission Date: 20110411
  Serious: Yes (Death)
  Sender: FDA-Public Use
  Company Number: US-SANOFI-AVENTIS-2010SA064313

PATIENT
  Age: 49 Year
  Sex: Female

DRUGS (4)
  1. PLAVIX [Suspect]
     Route: 065
  2. WELLBUTRIN [Concomitant]
  3. VERAPAMIL [Concomitant]
  4. CILOSTAZOL [Concomitant]

REACTIONS (2)
  - CONDITION AGGRAVATED [None]
  - METASTATIC NEOPLASM [None]
